FAERS Safety Report 4588235-9 (Version None)
Quarter: 2005Q1

REPORT INFORMATION
  Report Type: 
  Country: None (occurrence: None)
  Receive Date: 20050221
  Receipt Date: 20050210
  Transmission Date: 20050727
  Serious: Yes (Disabling)
  Sender: FDA-Public Use
  Company Number: US-ROCHE-395336

PATIENT
  Age: 55 Year
  Sex: Female
  Weight: 81.6 kg

DRUGS (9)
  1. PEGASYS [Suspect]
     Indication: HEPATITIS C
     Route: 058
  2. RIBAVIRIN [Concomitant]
  3. FK-506 [Concomitant]
  4. NEURONTIN [Concomitant]
  5. ACTIGALL [Concomitant]
  6. INSULIN [Concomitant]
  7. NEXIUM [Concomitant]
  8. PROGRAF [Concomitant]
  9. TOPROL-XL [Concomitant]

REACTIONS (2)
  - DEAFNESS UNILATERAL [None]
  - VIIITH NERVE LESION [None]
